FAERS Safety Report 7722015-8 (Version None)
Quarter: 2011Q3

REPORT INFORMATION
  Report Type: 
  Country: None (occurrence: None)
  Receive Date: 20110831
  Receipt Date: 20110823
  Transmission Date: 20111222
  Serious: No
  Sender: FDA-Public Use
  Company Number: US-BAYER-2011-078033

PATIENT
  Sex: Female

DRUGS (6)
  1. BETASERON [Suspect]
     Dosage: WEEK#1-2; 0.25 ML, QOD
  2. BETASERON [Suspect]
     Dosage: WEEK#7; 1 ML, QOD
  3. BETASERON [Suspect]
     Dosage: WEEK#3-4; 0.5 ML, QOD
  4. BETASERON [Suspect]
     Dosage: WEEK#5-6;0.75 ML, QOD
  5. CETIRIZINE HCL [Concomitant]
  6. SYNTHROID [Concomitant]

REACTIONS (3)
  - INSOMNIA [None]
  - INJECTION SITE ERYTHEMA [None]
  - INFLUENZA LIKE ILLNESS [None]
